FAERS Safety Report 10726661 (Version 1)
Quarter: 2015Q1

REPORT INFORMATION
  Report Type: Spontaneous
  Country: US (occurrence: None)
  Receive Date: 20150120
  Receipt Date: 20150120
  Transmission Date: 20150721
  Serious: Yes (Hospitalization)
  Sender: FDA-Public Use
  Company Number: None

PATIENT
  Age: 71 Year
  Sex: Female
  Weight: 84.3 kg

DRUGS (9)
  1. ANGIOMAX [Concomitant]
     Active Substance: BIVALIRUDIN
  2. FENTANYL. [Concomitant]
     Active Substance: FENTANYL
  3. ASPIRIN. [Concomitant]
     Active Substance: ASPIRIN
  4. BRILINTA [Concomitant]
     Active Substance: TICAGRELOR
  5. HEPARIN [Concomitant]
     Active Substance: HEPARIN SODIUM
  6. NICARDIPINE [Concomitant]
     Active Substance: NICARDIPINE
  7. ANGIOMAX [Suspect]
     Active Substance: BIVALIRUDIN
     Indication: CATHETERISATION CARDIAC
     Dates: start: 20150112, end: 20150112
  8. 0.9%NACL [Concomitant]
  9. NITRO [Concomitant]
     Active Substance: NITROGLYCERIN

REACTIONS (2)
  - Thrombosis [None]
  - Chest pain [None]

NARRATIVE: CASE EVENT DATE: 20150112
